FAERS Safety Report 20884342 (Version 1)
Quarter: 2022Q2

REPORT INFORMATION
  Report Type: Spontaneous
  Country: None (occurrence: ES)
  Receive Date: 20220527
  Receipt Date: 20220527
  Transmission Date: 20220721
  Serious: Yes (Hospitalization)
  Sender: FDA-Public Use
  Company Number: ES-B.Braun Medical Inc.-2129268

PATIENT
  Age: 91 Year
  Sex: Female

DRUGS (2)
  1. ACETAMINOPHEN [Suspect]
     Active Substance: ACETAMINOPHEN
  2. CANDESARTAN [Concomitant]
     Active Substance: CANDESARTAN

REACTIONS (1)
  - Acute kidney injury [Unknown]
